FAERS Safety Report 4805775-5 (Version None)
Quarter: 2005Q4

REPORT INFORMATION
  Report Type: 
  Country: None (occurrence: None)
  Receive Date: 20051018
  Receipt Date: 20051018
  Transmission Date: 20060501
  Serious: Yes (Life-Threatening, Hospitalization)
  Sender: FDA-Public Use
  Company Number: None

PATIENT
  Sex: Female
  Weight: 74 kg

DRUGS (2)
  1. ASPIRIN [Suspect]
     Indication: CORONARY ARTERY DISEASE
     Dosage: 81 MG DAILY PO
     Route: 048
     Dates: start: 20051011, end: 20051016
  2. ASPIRIN [Suspect]
     Indication: PROPHYLAXIS
     Dosage: 81 MG DAILY PO
     Route: 048
     Dates: start: 20051011, end: 20051016

REACTIONS (10)
  - ANAEMIA [None]
  - CARDIO-RESPIRATORY ARREST [None]
  - CHILLS [None]
  - CORONARY ARTERY OCCLUSION [None]
  - DIVERTICULUM [None]
  - GASTROINTESTINAL ULCER HAEMORRHAGE [None]
  - HEADACHE [None]
  - INSOMNIA [None]
  - PYREXIA [None]
  - SYNCOPE VASOVAGAL [None]
